FAERS Safety Report 10311449 (Version 6)
Quarter: 2014Q4

REPORT INFORMATION
  Report Type: Spontaneous
  Country: US (occurrence: None)
  Receive Date: 20140714
  Receipt Date: 20141112
  Transmission Date: 20150528
  Serious: Yes (Hospitalization, Other)
  Sender: FDA-Public Use
  Company Number: US-000949

PATIENT
  Age: 41 Year
  Sex: Male
  Weight: 90.27 kg

DRUGS (14)
  1. SOLUTIONS FOR PARENTERAL NUTRITION [Concomitant]
     Active Substance: AMINO ACIDS\DEXTROSE\ELECTROLYTES NOS
  2. BENADRYL [Concomitant]
     Active Substance: DIPHENHYDRAMINE HYDROCHLORIDE
  3. GATTEX [Suspect]
     Active Substance: TEDUGLUTIDE\WATER
     Indication: SHORT-BOWEL SYNDROME
     Route: 058
     Dates: start: 20140306, end: 20140307
  4. IBUPROFEN. [Concomitant]
     Active Substance: IBUPROFEN
  5. FENTANYL. [Concomitant]
     Active Substance: FENTANYL
  6. METHADONE [Concomitant]
     Active Substance: METHADONE HYDROCHLORIDE
  7. AMITRIPTYLINE [Concomitant]
     Active Substance: AMITRIPTYLINE
  8. METHADONE [Concomitant]
     Active Substance: METHADONE HYDROCHLORIDE
  9. PHENERGAN [Concomitant]
     Active Substance: PROMETHAZINE HYDROCHLORIDE
  10. AMBIEN [Concomitant]
     Active Substance: ZOLPIDEM TARTRATE
  11. CLINDAMYCIN [Concomitant]
     Active Substance: CLINDAMYCIN\CLINDAMYCIN PHOSPHATE
  12. XANAX [Concomitant]
     Active Substance: ALPRAZOLAM
  13. PROAIR HFA [Concomitant]
     Active Substance: ALBUTEROL SULFATE
  14. ALBUTEROL. [Concomitant]
     Active Substance: ALBUTEROL

REACTIONS (13)
  - Pain [None]
  - Nausea [None]
  - Dyspnoea [None]
  - Back pain [None]
  - Blood potassium decreased [None]
  - Cold sweat [None]
  - Abdominal pain upper [None]
  - Hypersensitivity [None]
  - Abdominal pain [None]
  - Urticaria [None]
  - Discomfort [None]
  - Headache [None]
  - Allergy to plants [None]

NARRATIVE: CASE EVENT DATE: 2014
